FAERS Safety Report 7367250-6 (Version None)
Quarter: 2011Q1

REPORT INFORMATION
  Report Type: 
  Country: None (occurrence: None)
  Receive Date: 20110307
  Receipt Date: 20101206
  Transmission Date: 20110831
  Serious: Yes (Other)
  Sender: FDA-Public Use
  Company Number: 2010EU003989

PATIENT
  Age: 61 Year
  Sex: Female

DRUGS (5)
  1. ADVAGRAF (TACROLIMUS) CAPSULE [Suspect]
     Indication: IMMUNOSUPPRESSION
     Dosage: 15 MG/DAY, /D; 7 MG/DA /D, OTHER
     Route: 050
  2. PREDNISOLONE [Suspect]
     Indication: IMMUNOSUPPRESSION
     Dosage: 4 MG/DAY, /D;
  3. MYCOPHENOLATE MOFETIL [Suspect]
     Indication: IMMUNOSUPPRESSION
     Dosage: 720 MG/DAY /D.
  4. PROGRAF [Suspect]
     Indication: IMMUNOSUPPRESSION
  5. CLINDAMYCIN [Suspect]
     Indication: PNEUMOCYSTIS JIROVECI PNEUMONIA
     Dosage: 2400 MG/DAY, /D;

REACTIONS (3)
  - DRUG INTERACTION [None]
  - PNEUMOCYSTIS JIROVECI PNEUMONIA [None]
  - DRUG LEVEL BELOW THERAPEUTIC [None]
